FAERS Safety Report 8983719 (Version 1)
Quarter: 2012Q4

REPORT INFORMATION
  Report Type: 
  Country: CA (occurrence: CA)
  Receive Date: 20121224
  Receipt Date: 20121224
  Transmission Date: 20130627
  Serious: Yes (Hospitalization, Other)
  Sender: FDA-Public Use
  Company Number: CA-ROCHE-1132230

PATIENT
  Sex: Female

DRUGS (4)
  1. XOLAIR [Suspect]
     Indication: ASTHMA
     Route: 058
     Dates: start: 20110811
  2. SYMBICORT [Concomitant]
  3. UNIPHYL [Concomitant]
  4. ACCOLATE [Concomitant]

REACTIONS (3)
  - Dyspnoea [Unknown]
  - Laryngeal oedema [Unknown]
  - Wheezing [Unknown]
